FAERS Safety Report 18343439 (Version 1)
Quarter: 2020Q4

REPORT INFORMATION
  Report Type: Spontaneous
  Country: US (occurrence: US)
  Receive Date: 20201004
  Receipt Date: 20201004
  Transmission Date: 20210113
  Serious: Yes (Life-Threatening, Disabling, Other)
  Sender: FDA-Public Use
  Company Number: None

PATIENT
  Age: 47 Year
  Sex: Female
  Weight: 93.6 kg

DRUGS (1)
  1. EDARBI [Suspect]
     Active Substance: AZILSARTAN KAMEDOXOMIL
     Indication: HYPERTENSION
     Dosage: ?          QUANTITY:1 TABLET(S);?
     Route: 048
     Dates: start: 20180711, end: 20200913

REACTIONS (8)
  - Toxicity to various agents [None]
  - Fatigue [None]
  - Diabetes mellitus [None]
  - Oedema [None]
  - Inflammation [None]
  - Infertility female [None]
  - Weight increased [None]
  - Blood creatinine increased [None]

NARRATIVE: CASE EVENT DATE: 20180725
